FAERS Safety Report 7913136-5 (Version None)
Quarter: 2011Q4

REPORT INFORMATION
  Report Type: 
  Country: None (occurrence: None)
  Receive Date: 20111114
  Receipt Date: 20111031
  Transmission Date: 20120403
  Serious: Yes (Hospitalization, Other)
  Sender: FDA-Public Use
  Company Number: US-ELI_LILLY_AND_COMPANY-US201005002461

PATIENT
  Sex: Female

DRUGS (8)
  1. FORTEO [Suspect]
     Indication: OSTEOPOROSIS
     Dosage: 20 UG, DAILY (1/D)
     Dates: start: 20090904
  2. VITAMIN D [Concomitant]
  3. GARLIC [Concomitant]
  4. CALCIUM [Concomitant]
  5. FORTEO [Suspect]
     Dosage: 20 UG, DAILY (1/D)
     Route: 065
  6. MULTI-VITAMIN [Concomitant]
  7. MAGNESIUM [Concomitant]
  8. FORTEO [Suspect]
     Dosage: 20 UG, QD
     Dates: end: 20110904

REACTIONS (16)
  - TONGUE DISCOLOURATION [None]
  - WEIGHT DECREASED [None]
  - ACUTE CORONARY SYNDROME [None]
  - RASH [None]
  - DRY SKIN [None]
  - SKIN EXFOLIATION [None]
  - DRY MOUTH [None]
  - PRURITUS [None]
  - TONGUE COATED [None]
  - SINUS DISORDER [None]
  - HYPERTENSION [None]
  - MYOCARDIAL INFARCTION [None]
  - VENTRICULAR SEPTAL DEFECT [None]
  - ACNE [None]
  - NASAL CONGESTION [None]
  - ANAEMIA [None]
